FAERS Safety Report 17835065 (Version 1)
Quarter: 2020Q2

REPORT INFORMATION
  Report Type: Spontaneous
  Country: US (occurrence: US)
  Receive Date: 20200528
  Receipt Date: 20200528
  Transmission Date: 20200714
  Serious: No
  Sender: FDA-Public Use
  Company Number: None

PATIENT
  Age: 73 Year
  Sex: Male
  Weight: 71.55 kg

DRUGS (10)
  1. CISPLATIN. [Concomitant]
     Active Substance: CISPLATIN
  2. GEMCITABINE. [Concomitant]
     Active Substance: GEMCITABINE
  3. METFORMIN [Concomitant]
     Active Substance: METFORMIN HYDROCHLORIDE
  4. MAG-OXIDE [Concomitant]
     Active Substance: MAGNESIUM OXIDE
  5. CAPECITABINE. [Suspect]
     Active Substance: CAPECITABINE
     Indication: BILE DUCT CANCER
     Route: 048
  6. LOSARTAN. [Concomitant]
     Active Substance: LOSARTAN
  7. METOPROLOL. [Concomitant]
     Active Substance: METOPROLOL
  8. ISOSORBIDE MONONITRATE. [Concomitant]
     Active Substance: ISOSORBIDE MONONITRATE
  9. ASPIRIN. [Concomitant]
     Active Substance: ASPIRIN
  10. FINASTERIDE. [Concomitant]
     Active Substance: FINASTERIDE

REACTIONS (1)
  - Death [None]

NARRATIVE: CASE EVENT DATE: 20200528
